FAERS Safety Report 13539982 (Version 1)
Quarter: 2017Q2

REPORT INFORMATION
  Report Type: Spontaneous
  Country: SE (occurrence: SE)
  Receive Date: 20170512
  Receipt Date: 20170512
  Transmission Date: 20170830
  Serious: Yes (Death, Other)
  Sender: FDA-Public Use
  Company Number: SE-GLAXOSMITHKLINE-SE2017GSK069409

PATIENT
  Sex: Male

DRUGS (1)
  1. VOLTAREN (DICLOFENAC POTASSIUM) [Suspect]
     Active Substance: DICLOFENAC POTASSIUM
     Indication: PRODUCT USED FOR UNKNOWN INDICATION

REACTIONS (4)
  - Pulmonary oedema [Fatal]
  - Lung transplant [Fatal]
  - Lung disorder [Fatal]
  - Cardiac disorder [Fatal]
